FAERS Safety Report 8588939-7 (Version None)
Quarter: 2012Q3

REPORT INFORMATION
  Report Type: 
  Country: None (occurrence: None)
  Receive Date: 20120813
  Receipt Date: 20120801
  Transmission Date: 20120928
  Serious: Yes (Hospitalization)
  Sender: FDA-Public Use
  Company Number: JP-NOVOPROD-354625

PATIENT
  Age: 81 Year
  Sex: Male

DRUGS (7)
  1. PERSANTIN [Concomitant]
     Indication: CEREBRAL INFARCTION
     Route: 048
  2. PRAVASTATIN [Concomitant]
     Indication: HYPERLIPIDAEMIA
     Route: 048
  3. ROCALTROL [Concomitant]
     Indication: HYPERPARATHYROIDISM SECONDARY
     Route: 048
  4. SUREPOST [Suspect]
     Indication: DIABETES MELLITUS
     Dosage: UNK
     Route: 048
     Dates: start: 20120530, end: 20120618
  5. LANSOPRAZOLE [Concomitant]
     Indication: GASTROOESOPHAGEAL REFLUX DISEASE
     Route: 048
  6. ASPIRIN [Concomitant]
     Indication: CEREBRAL INFARCTION
     Route: 048
  7. WARFARIN SODIUM [Concomitant]
     Indication: ATRIAL FIBRILLATION
     Route: 048

REACTIONS (2)
  - HYPOGLYCAEMIA [None]
  - ILEUS PARALYTIC [None]
